FAERS Safety Report 9901167 (Version 2)
Quarter: 2014Q2

REPORT INFORMATION
  Report Type: Spontaneous
  Country: US (occurrence: US)
  Receive Date: 20140217
  Receipt Date: 20140417
  Transmission Date: 20141212
  Serious: No
  Sender: FDA-Public Use
  Company Number: US-PFIZER INC-2014044867

PATIENT
  Age: 50 Year
  Sex: Female
  Weight: 127 kg

DRUGS (9)
  1. LYRICA [Suspect]
     Indication: NEURALGIA
     Dosage: 75 MG, 2X/DAY
     Route: 048
  2. VITAMIN B12 [Concomitant]
     Dosage: UNK
  3. VITAMIN D3 [Concomitant]
     Dosage: UNK
  4. FISH OIL [Concomitant]
     Dosage: UNK
  5. FLUOXETINE [Concomitant]
     Dosage: 40 MG, 1X/DAY
  6. FIBERCON [Concomitant]
     Dosage: UNK, 1X/DAY
  7. MIRALAX [Concomitant]
     Dosage: UNK, AS NEEDED
  8. PROPRANOLOL [Concomitant]
     Indication: HYPERTENSION
     Dosage: 10 MG, 2X/DAY
  9. PRAVASTATIN [Concomitant]
     Indication: BLOOD CHOLESTEROL INCREASED
     Dosage: 40 MG, 2X/DAY

REACTIONS (1)
  - Anxiety [Unknown]
